FAERS Safety Report 9426303 (Version 1)
Quarter: 2013Q3

REPORT INFORMATION
  Report Type: Spontaneous
  Country: FR (occurrence: FR)
  Receive Date: 20130730
  Receipt Date: 20130730
  Transmission Date: 20140515
  Serious: Yes (Life-Threatening)
  Sender: FDA-Public Use
  Company Number: FR-BRISTOL-MYERS SQUIBB COMPANY-19123546

PATIENT
  Age: 84 Year
  Sex: Female

DRUGS (4)
  1. HYDREA CAPS 500 MG [Suspect]
     Indication: ESSENTIAL THROMBOCYTHAEMIA
     Dates: start: 20100623, end: 20121128
  2. ASPEGIC [Concomitant]
     Dosage: 1 SACHET PER DAY.
  3. KARDEGIC [Concomitant]
     Dosage: DOSE REDUCED DUE TO HEMATOMA.
  4. XAGRID [Concomitant]
     Dosage: ON 5NOV12 XANGRID TAKEN FOR POSITIVE INOTROPIC EFFECT.?ON 28NOV12 TO SUBSEQUENT 10DAYS.
     Dates: start: 20121128

REACTIONS (6)
  - Myelodysplastic syndrome [Not Recovered/Not Resolved]
  - Anaemia [Not Recovered/Not Resolved]
  - Pallor [Not Recovered/Not Resolved]
  - Vertigo [Not Recovered/Not Resolved]
  - Malaise [Not Recovered/Not Resolved]
  - Off label use [Not Recovered/Not Resolved]
